FAERS Safety Report 4454605-2 (Version None)
Quarter: 2004Q3

REPORT INFORMATION
  Report Type: 
  Country: None (occurrence: None)
  Receive Date: 20040920
  Receipt Date: 20040920
  Transmission Date: 20050211
  Serious: Yes (Other)
  Sender: FDA-Public Use
  Company Number: None

PATIENT
  Age: 88 Year
  Sex: Male

DRUGS (1)
  1. FLUORESCEIN [Suspect]
     Indication: ANGIOGRAM
     Dosage: 5 ML IV X 1
     Route: 042
     Dates: start: 20040721

REACTIONS (3)
  - INFUSION RELATED REACTION [None]
  - PRURITUS [None]
  - URTICARIA [None]
